FAERS Safety Report 21031381 (Version 1)
Quarter: 2022Q3

REPORT INFORMATION
  Report Type: Spontaneous
  Country: IN (occurrence: IN)
  Receive Date: 20220701
  Receipt Date: 20220701
  Transmission Date: 20221027
  Serious: Yes (Other)
  Sender: FDA-Public Use
  Company Number: IN-NOVOPROD-932278

PATIENT
  Age: 17 Year
  Sex: Female
  Weight: 47.3 kg

DRUGS (1)
  1. MIXTARD HUMAN 70/30 [Suspect]
     Active Substance: INSULIN HUMAN
     Indication: Type 1 diabetes mellitus
     Dosage: 1.2-UNIT/KG/DAY

REACTIONS (3)
  - Diabetic ketoacidosis [Recovered/Resolved]
  - Product dose omission issue [Unknown]
  - Type IV hypersensitivity reaction [Recovering/Resolving]
